FAERS Safety Report 9716816 (Version 2)
Quarter: 2014Q1

REPORT INFORMATION
  Report Type: Spontaneous
  Country: ZA (occurrence: None)
  Receive Date: 20131125
  Receipt Date: 20140219
  Transmission Date: 20141002
  Serious: Yes (Other)
  Sender: FDA-Public Use
  Company Number: AUR-APL-2013-09619

PATIENT
  Age: 38 Year
  Sex: Female

DRUGS (3)
  1. STAVUDINE [Suspect]
     Indication: ANTIRETROVIRAL THERAPY
     Dosage: 60 TOTAL DAILY DOSE, ORAL
     Dates: start: 20120223
  2. INTELENCE [Suspect]
     Indication: ANTIRETROVIRAL THERAPY
     Dosage: (400MG, 1 D) ORAL
     Route: 048
     Dates: start: 20120223, end: 20130918
  3. KALETRA [Suspect]
     Indication: ANTIRETROVIRAL THERAPY
     Dosage: 2 DOSAGE FORMS, ORAL
     Route: 048
     Dates: start: 20120223

REACTIONS (3)
  - Abortion spontaneous [None]
  - Placenta praevia [None]
  - Exposure during pregnancy [None]
